FAERS Safety Report 6806522-8 (Version None)
Quarter: 2010Q2

REPORT INFORMATION
  Report Type: 
  Country: None (occurrence: None)
  Receive Date: 20100629
  Receipt Date: 20080516
  Transmission Date: 20101027
  Serious: Yes (Other)
  Sender: FDA-Public Use
  Company Number: US-PFIZER INC-2008026986

PATIENT
  Sex: Male
  Weight: 68.181 kg

DRUGS (2)
  1. MEDROL [Suspect]
     Indication: JOINT INJURY
     Route: 048
     Dates: start: 20080312, end: 20080317
  2. IBUPROFEN [Concomitant]
     Route: 048
     Dates: start: 20080312

REACTIONS (3)
  - HEADACHE [None]
  - HYPERTENSION [None]
  - MOOD SWINGS [None]
